FAERS Safety Report 19989486 (Version 2)
Quarter: 2021Q4

REPORT INFORMATION
  Report Type: Spontaneous
  Country: FR (occurrence: FR)
  Receive Date: 20211025
  Receipt Date: 20211125
  Transmission Date: 20220303
  Serious: Yes (Other)
  Sender: FDA-Public Use
  Company Number: FR-ORGANON-O2110FRA002005

PATIENT
  Sex: Male

DRUGS (4)
  1. LIPTRUZET [Suspect]
     Active Substance: ATORVASTATIN CALCIUM\EZETIMIBE
     Dosage: ONCE PER DAY (QD)
     Route: 048
  2. ASPIRIN [Concomitant]
     Active Substance: ASPIRIN
     Dosage: 100 MILLIGRAM, ONCE PER DAY (QD)
  3. PERINDOPRIL [Concomitant]
     Active Substance: PERINDOPRIL
     Dosage: 1 AND HALF TABLET PER DAY (QD)
  4. BISOPROLOL [Concomitant]
     Active Substance: BISOPROLOL
     Dosage: 3.75MG, ONCE PER DAY

REACTIONS (2)
  - Haemorrhage [Unknown]
  - Product package associated injury [Unknown]
